FAERS Safety Report 6932651-4 (Version None)
Quarter: 2010Q3

REPORT INFORMATION
  Report Type: 
  Country: None (occurrence: None)
  Receive Date: 20100817
  Receipt Date: 20100804
  Transmission Date: 20110219
  Serious: Yes (Hospitalization, Disabling)
  Sender: FDA-Public Use
  Company Number: 2009AL007474

PATIENT
  Age: 52 Year
  Sex: Female
  Weight: 85.7298 kg

DRUGS (63)
  1. METOCLOPRAMIDE [Suspect]
     Indication: MIGRAINE
     Dosage: 10 MG;TID;PO
     Route: 048
     Dates: start: 20030911, end: 20060801
  2. METOCLOPRAMIDE [Suspect]
     Indication: NAUSEA
     Dosage: 10 MG;TID;PO
     Route: 048
     Dates: start: 20030911, end: 20060801
  3. IMITREX [Concomitant]
  4. NORVASC [Concomitant]
  5. FLOVENT [Concomitant]
  6. ALBUTEROL [Concomitant]
  7. PHENERGAN [Concomitant]
  8. NORTRIPTYLINE HCL [Concomitant]
  9. PROZAC [Concomitant]
  10. KETOROLAC [Concomitant]
  11. TOPAMAX [Concomitant]
  12. THORAZINE [Concomitant]
  13. NAPROXEN [Concomitant]
  14. ZANTAC [Concomitant]
  15. LIPITOR [Concomitant]
  16. SINGULAIR [Concomitant]
  17. AMBIEN [Concomitant]
  18. ATENOLOL [Concomitant]
  19. CYMBALTA [Concomitant]
  20. PREVACID [Concomitant]
  21. CYPROHEPTADINE HCL [Concomitant]
  22. ACETAMINOPHEN W/ CODEINE [Concomitant]
  23. DIFLUNISAL [Concomitant]
  24. HYDROXYZINE PAMOATE [Concomitant]
  25. LORAZEPAM [Concomitant]
  26. ZANAFLEX [Concomitant]
  27. INDOMETHACIN [Concomitant]
  28. ALLEGRA [Concomitant]
  29. PERCOCET [Concomitant]
  30. ULTRAM [Concomitant]
  31. LOTREL [Concomitant]
  32. NADOLOL [Concomitant]
  33. ZOFRAN [Concomitant]
  34. ORUDIS [Concomitant]
  35. TESSALON [Concomitant]
  36. TUSSIONEX [Concomitant]
  37. AZITHROMYCIN [Concomitant]
  38. PREDNISONE [Concomitant]
  39. CLONAZAPEM [Concomitant]
  40. TRAMADOL HCL [Concomitant]
  41. AMOXICILLIN [Concomitant]
  42. FROVA [Concomitant]
  43. TRIMOX [Concomitant]
  44. PROCHLORPERAZINE [Concomitant]
  45. ROXICET [Concomitant]
  46. CYCLOBENZAPRINE [Concomitant]
  47. MYTUSSIN [Concomitant]
  48. NASACORT [Concomitant]
  49. DEPAKOTE [Concomitant]
  50. CEPHALEXIN [Concomitant]
  51. EFFEXOR [Concomitant]
  52. OXYCODONE [Concomitant]
  53. CLINDAMYCIN [Concomitant]
  54. BENZTROPINE MESYLATE [Concomitant]
  55. CYTOMEL [Concomitant]
  56. BACLOFEN [Concomitant]
  57. TRIAMCINOLONE [Concomitant]
  58. CARBIDOPA AND LEVODOPA [Concomitant]
  59. SUMATRIPAN [Concomitant]
  60. ABILIFY [Concomitant]
  61. ASPIRIN [Concomitant]
  62. NABUMETONE [Concomitant]
  63. PREV MEDS [Concomitant]

REACTIONS (95)
  - ABDOMINAL PAIN UPPER [None]
  - ACTIVITIES OF DAILY LIVING IMPAIRED [None]
  - ALANINE AMINOTRANSFERASE INCREASED [None]
  - ANXIETY [None]
  - ARTHRALGIA [None]
  - ASPARTATE AMINOTRANSFERASE INCREASED [None]
  - ASTHENIA [None]
  - ASTHMA [None]
  - BLOOD ALKALINE PHOSPHATASE INCREASED [None]
  - BLOOD CHOLESTEROL INCREASED [None]
  - BLOOD CREATINE DECREASED [None]
  - BLOOD PRESSURE INCREASED [None]
  - BLOOD UREA INCREASED [None]
  - BONE PAIN [None]
  - CARDIAC FLUTTER [None]
  - CERULOPLASMIN DECREASED [None]
  - CHEST PAIN [None]
  - CONDITION AGGRAVATED [None]
  - CONFUSIONAL STATE [None]
  - CONTUSION [None]
  - CONVULSION [None]
  - CRYING [None]
  - DECREASED APPETITE [None]
  - DEFORMITY [None]
  - DEHYDRATION [None]
  - DEPRESSED MOOD [None]
  - DEPRESSION [None]
  - DIARRHOEA [None]
  - DIPLOPIA [None]
  - DIZZINESS [None]
  - DYSARTHRIA [None]
  - DYSKINESIA [None]
  - DYSPNOEA [None]
  - DYSPNOEA EXERTIONAL [None]
  - DYSTONIA [None]
  - EAR PAIN [None]
  - ELECTROENCEPHALOGRAM ABNORMAL [None]
  - EMOTIONAL DISTRESS [None]
  - EXTRAPYRAMIDAL DISORDER [None]
  - FALL [None]
  - FATIGUE [None]
  - FEELING ABNORMAL [None]
  - FIBROMYALGIA [None]
  - HAEMATOCRIT DECREASED [None]
  - HAEMOGLOBIN DECREASED [None]
  - HEAD INJURY [None]
  - HEADACHE [None]
  - HYPERHIDROSIS [None]
  - HYPERLIPIDAEMIA [None]
  - HYPOTHYROIDISM [None]
  - IMPAIRED WORK ABILITY [None]
  - INFLUENZA [None]
  - INJURY [None]
  - INSOMNIA [None]
  - JOINT SWELLING [None]
  - LOSS OF CONSCIOUSNESS [None]
  - LOW DENSITY LIPOPROTEIN INCREASED [None]
  - LOWER LIMB FRACTURE [None]
  - LYMPHOCYTE COUNT DECREASED [None]
  - MEAN CELL VOLUME ABNORMAL [None]
  - MENSTRUAL DISORDER [None]
  - MENTAL DISORDER [None]
  - METRORRHAGIA [None]
  - MICTURITION URGENCY [None]
  - MIGRAINE [None]
  - MOVEMENT DISORDER [None]
  - MYALGIA [None]
  - MYOCLONUS [None]
  - NASAL CONGESTION [None]
  - NAUSEA [None]
  - NECK INJURY [None]
  - NERVOUS SYSTEM DISORDER [None]
  - OEDEMA [None]
  - OVERWEIGHT [None]
  - PAIN [None]
  - PALPITATIONS [None]
  - PANIC ATTACK [None]
  - PCO2 DECREASED [None]
  - PHONOPHOBIA [None]
  - PHOTOPHOBIA [None]
  - PRODUCTIVE COUGH [None]
  - RETCHING [None]
  - ROAD TRAFFIC ACCIDENT [None]
  - SINUS HEADACHE [None]
  - SINUS TACHYCARDIA [None]
  - SINUSITIS [None]
  - TARDIVE DYSKINESIA [None]
  - TOOTHACHE [None]
  - TREMOR [None]
  - UNEVALUABLE EVENT [None]
  - UPPER RESPIRATORY TRACT INFECTION [None]
  - VENTRICULAR EXTRASYSTOLES [None]
  - VITAMIN D DECREASED [None]
  - VOMITING [None]
  - WHITE BLOOD CELL COUNT INCREASED [None]
